FAERS Safety Report 9467413 (Version 1)
Quarter: 2013Q3

REPORT INFORMATION
  Report Type: Spontaneous
  Country: US (occurrence: None)
  Receive Date: 20130819
  Receipt Date: 20130819
  Transmission Date: 20140515
  Serious: Yes (Life-Threatening)
  Sender: FDA-Public Use
  Company Number: None

PATIENT
  Age: 59 Year
  Sex: Female
  Weight: 74 kg

DRUGS (3)
  1. HEPARIN SODIUM [Suspect]
     Indication: PULMONARY EMBOLISM
     Dates: start: 20130815, end: 20130815
  2. BENADRYL [Concomitant]
  3. OMEPRAZOLE [Concomitant]

REACTIONS (4)
  - Pruritus [None]
  - Hypotension [None]
  - Tachycardia [None]
  - Lethargy [None]
